FAERS Safety Report 15782398 (Version 1)
Quarter: 2019Q1

REPORT INFORMATION
  Report Type: Report from Study
  Country: JP (occurrence: JP)
  Receive Date: 20190102
  Receipt Date: 20190102
  Transmission Date: 20190417
  Serious: Yes (Death, Hospitalization)
  Sender: FDA-Public Use
  Company Number: JP-ACTELION-A-CH2018-184262

PATIENT
  Age: 64 Year
  Sex: Female
  Weight: 43.7 kg

DRUGS (16)
  1. PIMOBENDAN [Concomitant]
     Active Substance: PIMOBENDAN
  2. OPSUMIT [Suspect]
     Active Substance: MACITENTAN
     Indication: PULMONARY ARTERIAL HYPERTENSION
     Dosage: 10 MG, QD
     Route: 048
     Dates: start: 20180526, end: 20180630
  3. TRACLEER [Suspect]
     Active Substance: BOSENTAN
     Indication: PULMONARY ARTERIAL HYPERTENSION
     Dosage: UNK
     Route: 048
     Dates: end: 20180525
  4. SPIRONOLACTONE. [Concomitant]
     Active Substance: SPIRONOLACTONE
  5. FERROUS SODIUM CITRATE [Concomitant]
     Active Substance: SODIUM FERROUS CITRATE
  6. FEBURIC [Concomitant]
     Active Substance: FEBUXOSTAT
  7. DIGOXIN. [Concomitant]
     Active Substance: DIGOXIN
  8. REVATIO [Concomitant]
     Active Substance: SILDENAFIL CITRATE
  9. AMBROXOL HYDROCHLORIDE [Concomitant]
     Active Substance: AMBROXOL HYDROCHLORIDE
  10. CARVEDILOL. [Concomitant]
     Active Substance: CARVEDILOL
  11. OXYGEN. [Concomitant]
     Active Substance: OXYGEN
  12. FUROSEMIDE. [Concomitant]
     Active Substance: FUROSEMIDE
  13. SAMSCA [Concomitant]
     Active Substance: TOLVAPTAN
  14. MEXILETINE HYDROCHLORIDE. [Concomitant]
     Active Substance: MEXILETINE HYDROCHLORIDE
  15. WARFARIN [Concomitant]
     Active Substance: WARFARIN
  16. TANADOPA [Concomitant]
     Active Substance: DOCARPAMINE

REACTIONS (2)
  - Concomitant disease aggravated [Fatal]
  - Right ventricular failure [Fatal]
